FAERS Safety Report 16425740 (Version 2)
Quarter: 2019Q3

REPORT INFORMATION
  Report Type: Spontaneous
  Country: US (occurrence: US)
  Receive Date: 20190613
  Receipt Date: 20190725
  Transmission Date: 20191004
  Serious: No
  Sender: FDA-Public Use
  Company Number: US-PFIZER INC-2017322285

PATIENT
  Age: 67 Year
  Sex: Female
  Weight: 102.5 kg

DRUGS (2)
  1. ZOLOFT [Suspect]
     Active Substance: SERTRALINE HYDROCHLORIDE
     Indication: DEPRESSION
  2. ZOLOFT [Suspect]
     Active Substance: SERTRALINE HYDROCHLORIDE
     Indication: BIPOLAR DISORDER
     Dosage: 200 MG, 1X/DAY (ONCE DAY IN THE MORNING)
     Dates: start: 1994

REACTIONS (2)
  - Sedation [Unknown]
  - Amnesia [Unknown]
